FAERS Safety Report 9050203 (Version 2)
Quarter: 2013Q1

REPORT INFORMATION
  Report Type: Spontaneous
  Country: US (occurrence: US)
  Receive Date: 20130204
  Receipt Date: 20130305
  Transmission Date: 20140127
  Serious: No
  Sender: FDA-Public Use
  Company Number: US-AMGEN-USASP2013007146

PATIENT
  Age: 53 Year
  Sex: Female
  Weight: 61.22 kg

DRUGS (2)
  1. ENBREL [Suspect]
     Indication: RHEUMATOID ARTHRITIS
     Dosage: 50 MG, QWK
     Route: 058
     Dates: start: 20130109
  2. METHOTREXATE [Concomitant]
     Dosage: 12.5 MG, QWK
     Route: 048
     Dates: start: 20121119

REACTIONS (6)
  - Headache [Recovering/Resolving]
  - Ocular discomfort [Not Recovered/Not Resolved]
  - Photophobia [Not Recovered/Not Resolved]
  - Hypoaesthesia [Not Recovered/Not Resolved]
  - Anxiety [Not Recovered/Not Resolved]
  - Paraesthesia [Not Recovered/Not Resolved]
